FAERS Safety Report 11131067 (Version 2)
Quarter: 2016Q1

REPORT INFORMATION
  Report Type: Spontaneous
  Country: IT (occurrence: IT)
  Receive Date: 20150522
  Receipt Date: 20160205
  Transmission Date: 20160525
  Serious: Yes (Hospitalization, Other)
  Sender: FDA-Public Use
  Company Number: IT-BRISTOL-MYERS SQUIBB COMPANY-21170469

PATIENT
  Age: 24 Year
  Sex: Male

DRUGS (36)
  1. OLANZAPINE. [Concomitant]
     Active Substance: OLANZAPINE
     Indication: ANXIETY
     Dosage: 10 MG, QD
     Route: 065
  2. OLANZAPINE. [Concomitant]
     Active Substance: OLANZAPINE
     Indication: INSOMNIA
  3. VALPROIC ACID. [Concomitant]
     Active Substance: VALPROIC ACID
     Indication: INSOMNIA
  4. VALPROIC ACID. [Concomitant]
     Active Substance: VALPROIC ACID
     Indication: SOCIAL AVOIDANT BEHAVIOUR
  5. CLONAZEPAM. [Concomitant]
     Active Substance: CLONAZEPAM
     Indication: IDEAS OF REFERENCE
  6. VALPROIC ACID. [Concomitant]
     Active Substance: VALPROIC ACID
     Indication: IDEAS OF REFERENCE
  7. OLANZAPINE. [Concomitant]
     Active Substance: OLANZAPINE
     Indication: SOCIAL AVOIDANT BEHAVIOUR
  8. OLANZAPINE. [Concomitant]
     Active Substance: OLANZAPINE
     Indication: BLUNTED AFFECT
  9. CLONAZEPAM. [Concomitant]
     Active Substance: CLONAZEPAM
     Indication: INSOMNIA
  10. DIAZEPAM. [Concomitant]
     Active Substance: DIAZEPAM
     Indication: ANXIETY
     Dosage: 12 MG, QD
     Route: 065
  11. DIAZEPAM. [Concomitant]
     Active Substance: DIAZEPAM
     Indication: AGITATION
  12. DELORAZEPAM [Interacting]
     Active Substance: DELORAZEPAM
     Indication: ANXIETY
     Dosage: 2 MG, QD
     Route: 048
  13. CLONAZEPAM. [Concomitant]
     Active Substance: CLONAZEPAM
     Indication: AGITATION
  14. CLONAZEPAM. [Concomitant]
     Active Substance: CLONAZEPAM
     Indication: BLUNTED AFFECT
  15. DIAZEPAM. [Concomitant]
     Active Substance: DIAZEPAM
     Indication: BLUNTED AFFECT
  16. ABILIFY [Interacting]
     Active Substance: ARIPIPRAZOLE
     Indication: BLUNTED AFFECT
  17. VALPROIC ACID. [Concomitant]
     Active Substance: VALPROIC ACID
     Indication: BLUNTED AFFECT
  18. CLONAZEPAM. [Concomitant]
     Active Substance: CLONAZEPAM
     Indication: SOCIAL AVOIDANT BEHAVIOUR
  19. DIAZEPAM. [Concomitant]
     Active Substance: DIAZEPAM
     Indication: INSOMNIA
  20. ABILIFY [Interacting]
     Active Substance: ARIPIPRAZOLE
     Indication: AGITATION
     Dosage: 30 MG, UNK
     Route: 048
  21. ABILIFY [Interacting]
     Active Substance: ARIPIPRAZOLE
     Indication: IDEAS OF REFERENCE
  22. DELORAZEPAM [Interacting]
     Active Substance: DELORAZEPAM
     Indication: AGITATION
  23. DELORAZEPAM [Interacting]
     Active Substance: DELORAZEPAM
     Indication: INSOMNIA
  24. DELORAZEPAM [Interacting]
     Active Substance: DELORAZEPAM
     Indication: SOCIAL AVOIDANT BEHAVIOUR
  25. OLANZAPINE. [Concomitant]
     Active Substance: OLANZAPINE
     Indication: AGITATION
  26. CLONAZEPAM. [Concomitant]
     Active Substance: CLONAZEPAM
     Indication: ANXIETY
     Dosage: 2 MG, QD
     Route: 065
  27. VALPROIC ACID. [Concomitant]
     Active Substance: VALPROIC ACID
     Indication: ANXIETY
     Dosage: 600 MG, QD
     Route: 065
  28. DIAZEPAM. [Concomitant]
     Active Substance: DIAZEPAM
     Indication: SOCIAL AVOIDANT BEHAVIOUR
  29. DIAZEPAM. [Concomitant]
     Active Substance: DIAZEPAM
     Indication: IDEAS OF REFERENCE
  30. ABILIFY [Suspect]
     Active Substance: ARIPIPRAZOLE
     Indication: ANXIETY
     Dosage: 20 MG, QD
     Route: 048
  31. ABILIFY [Interacting]
     Active Substance: ARIPIPRAZOLE
     Indication: INSOMNIA
  32. ABILIFY [Interacting]
     Active Substance: ARIPIPRAZOLE
     Indication: SOCIAL AVOIDANT BEHAVIOUR
  33. DELORAZEPAM [Interacting]
     Active Substance: DELORAZEPAM
     Indication: IDEAS OF REFERENCE
  34. DELORAZEPAM [Interacting]
     Active Substance: DELORAZEPAM
     Indication: BLUNTED AFFECT
  35. OLANZAPINE. [Concomitant]
     Active Substance: OLANZAPINE
     Indication: IDEAS OF REFERENCE
  36. VALPROIC ACID. [Concomitant]
     Active Substance: VALPROIC ACID
     Indication: AGITATION

REACTIONS (3)
  - Hiccups [Recovered/Resolved]
  - Off label use [Unknown]
  - Drug interaction [Unknown]
